FAERS Safety Report 8190477-0 (Version None)
Quarter: 2012Q1

REPORT INFORMATION
  Report Type: 
  Country: None (occurrence: None)
  Receive Date: 20120307
  Receipt Date: 20120227
  Transmission Date: 20120608
  Serious: Yes (Other)
  Sender: FDA-Public Use
  Company Number: US-FRI-1000024586

PATIENT
  Sex: 0

DRUGS (8)
  1. ZOFRAN [Concomitant]
     Indication: NAUSEA
     Dosage: 4 MG EVERY 8 HOURS AS NEEDED
     Route: 064
  2. FISH OIL [Concomitant]
     Indication: PREGNANCY
     Route: 064
  3. VITAMIN AND MINERAL PRENATAL SUPPLEMENT W/ FOLIC ACID CAP [Concomitant]
     Indication: PREGNANCY
     Route: 064
  4. LEXAPRO [Suspect]
     Indication: CYCLOTHYMIC DISORDER
  5. VALTREX [Concomitant]
     Indication: HERPES VIRUS INFECTION
     Dosage: 500 MG
     Route: 064
     Dates: start: 20111129, end: 20111228
  6. ZINC SULFATE [Concomitant]
     Indication: PREGNANCY
     Route: 064
  7. LEXAPRO [Suspect]
     Indication: DEPRESSION
     Dosage: 20 MG
     Route: 064
     Dates: start: 20110401, end: 20111228
  8. VITAMIN B-12 [Concomitant]
     Indication: PREGNANCY
     Route: 064

REACTIONS (1)
  - SUPRAVENTRICULAR EXTRASYSTOLES [None]
